FAERS Safety Report 7998124-5 (Version None)
Quarter: 2011Q4

REPORT INFORMATION
  Report Type: 
  Country: None (occurrence: None)
  Receive Date: 20111221
  Receipt Date: 20110211
  Transmission Date: 20120403
  Serious: No
  Sender: FDA-Public Use
  Company Number: US-GLAXOSMITHKLINE-A0913843A

PATIENT
  Age: 38 Year
  Sex: Female

DRUGS (5)
  1. LABETALOL HCL [Concomitant]
  2. ALDOMET [Concomitant]
  3. LOVAZA [Suspect]
     Indication: IGA NEPHROPATHY
     Dosage: 2CAP TWICE PER DAY
     Route: 048
     Dates: start: 20080801
  4. VITAMIN AND MINERAL PRENATAL SUPPLEMENT W/ FOLIC ACID CAP [Concomitant]
  5. FOLIC ACID [Concomitant]

REACTIONS (1)
  - MATERNAL EXPOSURE DURING PREGNANCY [None]
